FAERS Safety Report 6633008-6 (Version None)
Quarter: 2010Q1

REPORT INFORMATION
  Report Type: 
  Country: None (occurrence: None)
  Receive Date: 20100312
  Receipt Date: 20100302
  Transmission Date: 20100710
  Serious: Yes (Hospitalization)
  Sender: FDA-Public Use
  Company Number: BR-ABBOTT-10P-020-0629925-00

PATIENT
  Sex: Male
  Weight: 96.7 kg

DRUGS (9)
  1. WARFARIN SODIUM [Suspect]
     Indication: PULMONARY HYPERTENSION
     Route: 048
     Dates: start: 20080920, end: 20091205
  2. WARFARIN SODIUM [Suspect]
     Route: 048
     Dates: start: 20100105
  3. MARAVIROC [Suspect]
     Indication: HIV INFECTION
     Route: 048
     Dates: start: 20080626
  4. ENALAPRIL MALEATE [Concomitant]
     Indication: HYPERTENSION
     Dates: start: 20030101
  5. CLONAZEPAM [Concomitant]
     Indication: INSOMNIA
     Dates: start: 20030101
  6. TENOFOVIR [Concomitant]
     Indication: HIV INFECTION
     Dates: start: 20080625
  7. LAMIVUDINE [Concomitant]
     Indication: HIV INFECTION
     Dates: start: 20070701
  8. DARUNAVIR [Concomitant]
     Indication: HIV INFECTION
     Dates: start: 20080625
  9. RITONAVIR [Concomitant]
     Indication: HIV INFECTION
     Dates: start: 20080625

REACTIONS (2)
  - HAEMATOMA [None]
  - MUSCLE RUPTURE [None]
